FAERS Safety Report 5577662-9 (Version None)
Quarter: 2007Q4

REPORT INFORMATION
  Report Type: 
  Country: None (occurrence: None)
  Receive Date: 20071231
  Receipt Date: 20071221
  Transmission Date: 20080405
  Serious: Yes (Hospitalization, Other)
  Sender: FDA-Public Use
  Company Number: PHHO2007DE16006

PATIENT
  Age: 56 Year
  Sex: Male

DRUGS (2)
  1. GLEEVEC [Suspect]
     Indication: BILE DUCT CANCER
     Dosage: 600 MG, QD
     Route: 048
     Dates: start: 20070820, end: 20070914
  2. HEPARIN [Suspect]

REACTIONS (9)
  - CANDIDIASIS [None]
  - CATHETER PLACEMENT [None]
  - ESCHERICHIA INFECTION [None]
  - HEPARIN-INDUCED THROMBOCYTOPENIA [None]
  - HYPOKALAEMIA [None]
  - HYPONATRAEMIA [None]
  - LIVER ABSCESS [None]
  - PYREXIA [None]
  - SEPSIS [None]
